FAERS Safety Report 4614624-X (Version None)
Quarter: 2005Q2

REPORT INFORMATION
  Report Type: 
  Country: None (occurrence: None)
  Receive Date: 20050303
  Receipt Date: 20040816
  Transmission Date: 20051028
  Serious: Yes (Disabling)
  Sender: FDA-Public Use
  Company Number: WAES 0408USA01299

PATIENT
  Age: 86 Year
  Sex: Female

DRUGS (5)
  1. PRINIVIL [Suspect]
     Dosage: 10 MG/DAILY/PO
     Route: 048
  2. COUMADIN [Concomitant]
  3. LOPRESSOR [Suspect]
  4. NORVASC [Suspect]
  5. LASIX [Suspect]

REACTIONS (2)
  - ASTHENIA [None]
  - FATIGUE [None]
